FAERS Safety Report 15805438 (Version 1)
Quarter: 2019Q1

REPORT INFORMATION
  Report Type: Spontaneous
  Country: US (occurrence: US)
  Receive Date: 20190110
  Receipt Date: 20190110
  Transmission Date: 20190417
  Serious: Yes (Hospitalization)
  Sender: FDA-Public Use
  Company Number: US-AEGERION PHARMACEUTICAL, INC-AEGR004103

PATIENT
  Age: 60 Year
  Sex: Female
  Weight: 47.62 kg

DRUGS (1)
  1. JUXTAPID [Suspect]
     Active Substance: LOMITAPIDE MESYLATE
     Indication: TYPE IIA HYPERLIPIDAEMIA
     Dosage: 5 MG, AT BEDTIME
     Route: 048

REACTIONS (5)
  - Localised infection [Recovering/Resolving]
  - Atrial fibrillation [Recovering/Resolving]
  - Toe amputation [Recovering/Resolving]
  - Decreased appetite [Recovering/Resolving]
  - Myocardial infarction [Recovering/Resolving]

NARRATIVE: CASE EVENT DATE: 201811
